FAERS Safety Report 12475557 (Version 1)
Quarter: 2016Q2

REPORT INFORMATION
  Report Type: Spontaneous
  Country: US (occurrence: US)
  Receive Date: 20160617
  Receipt Date: 20160617
  Transmission Date: 20160815
  Serious: No
  Sender: FDA-Public Use
  Company Number: US-MYLANLABS-2016M1001648

PATIENT
  Age: 80 Year
  Sex: Female
  Weight: 68.48 kg

DRUGS (14)
  1. BUDESONIDE CAPSULES [Suspect]
     Active Substance: BUDESONIDE
     Indication: OFF LABEL USE
     Dosage: 6 MG, UNK
     Dates: start: 20151217, end: 20160316
  2. BUDESONIDE CAPSULES [Suspect]
     Active Substance: BUDESONIDE
     Indication: DIARRHOEA
     Dosage: 3 MG, QD
  3. CALCIUM + MAGNESIUM [Concomitant]
     Indication: RHEUMATOID ARTHRITIS
     Dosage: UNK
  4. LEVOTHYROXINE. [Concomitant]
     Active Substance: LEVOTHYROXINE
     Dosage: 112 ?G, QD, PO
     Route: 048
  5. CITALOPRAM [Concomitant]
     Active Substance: CITALOPRAM HYDROBROMIDE
     Indication: STRESS
     Dosage: 40 MG, QD, PO
     Route: 048
  6. GLUCOSAMINE + CHONDROITIN WITH MSM /05199601/ [Concomitant]
     Dosage: UNK
  7. KEPPRA [Concomitant]
     Active Substance: LEVETIRACETAM
     Indication: CEREBRAL DISORDER
     Dosage: 500 MG, BID, PO
     Route: 048
  8. BIOTIN [Concomitant]
     Active Substance: BIOTIN
     Dosage: UNK
  9. LANSOPRAZOLE. [Concomitant]
     Active Substance: LANSOPRAZOLE
     Indication: GASTROOESOPHAGEAL REFLUX DISEASE
     Dosage: UNK
  10. VITAMIN D                          /00107901/ [Concomitant]
     Active Substance: ERGOCALCIFEROL
     Indication: RHEUMATOID ARTHRITIS
     Dosage: UNK
  11. FISH OIL [Concomitant]
     Active Substance: FISH OIL
     Indication: RHEUMATOID ARTHRITIS
     Dosage: UNK
  12. IBUPROFEN. [Concomitant]
     Active Substance: IBUPROFEN
     Indication: PAIN
     Dosage: UNK
  13. GLUCOSAMINE SULFATE [Concomitant]
     Active Substance: GLUCOSAMINE SULFATE
     Dosage: UNK
  14. BUDESONIDE CAPSULES [Suspect]
     Active Substance: BUDESONIDE
     Indication: INFECTION
     Dosage: 3 MG ORALLY, FOR 1 MONTH, THEN DECREASE BUY ONE CAPSULE EACH MONTH PO
     Route: 048
     Dates: start: 20150924, end: 20151023

REACTIONS (5)
  - Back pain [Not Recovered/Not Resolved]
  - Glomerular filtration rate increased [Not Recovered/Not Resolved]
  - Myalgia [Not Recovered/Not Resolved]
  - Blood thyroid stimulating hormone increased [Not Recovered/Not Resolved]
  - Low density lipoprotein increased [Not Recovered/Not Resolved]

NARRATIVE: CASE EVENT DATE: 201601
